FAERS Safety Report 17406206 (Version 1)
Quarter: 2020Q1

REPORT INFORMATION
  Report Type: Spontaneous
  Country: US (occurrence: US)
  Receive Date: 20200212
  Receipt Date: 20200212
  Transmission Date: 20200409
  Serious: Yes (Death, Life-Threatening, Other)
  Sender: FDA-Public Use
  Company Number: US-AMGEN-USASP2020021926

PATIENT

DRUGS (6)
  1. ABIRATERONE. [Concomitant]
     Active Substance: ABIRATERONE ACETATE
  2. DOCETAXEL. [Concomitant]
     Active Substance: DOCETAXEL
  3. ENZALUTAMIDE [Concomitant]
     Active Substance: ENZALUTAMIDE
  4. ZOLEDRONIC ACID [Concomitant]
     Active Substance: ZOLEDRONIC ACID
  5. XGEVA [Suspect]
     Active Substance: DENOSUMAB
     Indication: HORMONE-REFRACTORY PROSTATE CANCER
     Dosage: UNK
     Route: 065
  6. CABAZITAXEL [Concomitant]
     Active Substance: CABAZITAXEL

REACTIONS (27)
  - Febrile neutropenia [Fatal]
  - Subdural haematoma [Fatal]
  - Bone pain [Unknown]
  - Neutropenia [Unknown]
  - Fatigue [Unknown]
  - Myocardial infarction [Fatal]
  - Thrombocytopenia [Unknown]
  - Anaemia [Unknown]
  - Disease progression [Fatal]
  - Hypertension [Unknown]
  - Neutrophil count decreased [Unknown]
  - Spinal cord compression [Unknown]
  - Nausea [Unknown]
  - Decreased appetite [Unknown]
  - Arthralgia [Unknown]
  - Vomiting [Unknown]
  - General physical health deterioration [Fatal]
  - Urosepsis [Fatal]
  - Prostate cancer [Fatal]
  - Pancytopenia [Unknown]
  - Death [Fatal]
  - Back pain [Unknown]
  - Weight decreased [Unknown]
  - Pain in extremity [Unknown]
  - Constipation [Unknown]
  - Asthenia [Unknown]
  - Diarrhoea [Unknown]
